FAERS Safety Report 12175467 (Version 1)
Quarter: 2016Q1

REPORT INFORMATION
  Report Type: Other
  Country: GR (occurrence: GR)
  Receive Date: 20160314
  Receipt Date: 20160314
  Transmission Date: 20160526
  Serious: Yes (Hospitalization, Other)
  Sender: FDA-Public Use
  Company Number: GR-MYLANLABS-2016M1009906

PATIENT

DRUGS (4)
  1. VANCOMYCIN MYLAN [Suspect]
     Active Substance: VANCOMYCIN
     Dosage: 380 MG, QID (80 MG/KG PER DAY)
     Route: 042
     Dates: start: 20160128, end: 20160130
  2. VANCOMYCIN MYLAN [Suspect]
     Active Substance: VANCOMYCIN
     Dosage: 300 MG, QID (65 MG/KG PER DAY)
     Route: 042
     Dates: start: 20160127, end: 20160128
  3. VANCOMYCIN MYLAN [Suspect]
     Active Substance: VANCOMYCIN
     Indication: MENINGITIS PNEUMOCOCCAL
     Dosage: 285 MG, QID (60 MG/KG PER DAY)
     Route: 042
     Dates: start: 20160126, end: 20160127
  4. CEFTRIAXONE. [Concomitant]
     Active Substance: CEFTRIAXONE
     Dosage: UNK
     Route: 042
     Dates: start: 20160126, end: 20160130

REACTIONS (1)
  - Drug level below therapeutic [Recovered/Resolved]

NARRATIVE: CASE EVENT DATE: 20160126
